FAERS Safety Report 12602478 (Version 2)
Quarter: 2016Q3

REPORT INFORMATION
  Report Type: Spontaneous
  Country: TW (occurrence: TW)
  Receive Date: 20160728
  Receipt Date: 20160802
  Transmission Date: 20161109
  Serious: Yes (Hospitalization, Other)
  Sender: FDA-Public Use
  Company Number: TW-ROCHE-1803156

PATIENT
  Age: 68 Year
  Sex: Female

DRUGS (2)
  1. PEG-INTERFERON ALFA 2A [Suspect]
     Active Substance: PEGINTERFERON ALFA-2A
     Indication: PRODUCT USED FOR UNKNOWN INDICATION
     Route: 065
  2. RIBAVIRIN. [Suspect]
     Active Substance: RIBAVIRIN
     Indication: HEPATITIS C
     Route: 065

REACTIONS (11)
  - Alopecia [Unknown]
  - Fatigue [Unknown]
  - Hypoaesthesia [Unknown]
  - Pain in extremity [Unknown]
  - Peritonitis bacterial [Recovered/Resolved]
  - Weight decreased [Unknown]
  - Hepatic neoplasm [Unknown]
  - Depression [Unknown]
  - Ascites [Recovered/Resolved]
  - Pyrexia [Unknown]
  - Drug ineffective [Unknown]
